FAERS Safety Report 21793298 (Version 1)
Quarter: 2022Q4

REPORT INFORMATION
  Report Type: Spontaneous
  Country: BE (occurrence: BE)
  Receive Date: 20221229
  Receipt Date: 20221229
  Transmission Date: 20230113
  Serious: Yes (Other)
  Sender: FDA-Public Use
  Company Number: BE-002147023-NVSC2022BE293076

PATIENT
  Sex: Female

DRUGS (2)
  1. GILENYA [Suspect]
     Active Substance: FINGOLIMOD HYDROCHLORIDE
     Indication: Multiple sclerosis
     Dosage: UNK
     Route: 065
  2. CORTISONE [Suspect]
     Active Substance: CORTISONE
     Indication: Product used for unknown indication
     Dosage: UNK
     Route: 042

REACTIONS (8)
  - Multiple sclerosis relapse [Unknown]
  - Blindness [Unknown]
  - Muscle spasms [Recovered/Resolved]
  - Immunosuppression [Unknown]
  - Pyrexia [Unknown]
  - Influenza [Unknown]
  - Nasopharyngitis [Unknown]
  - Asthenia [Unknown]
